FAERS Safety Report 6902598-8 (Version None)
Quarter: 2010Q3

REPORT INFORMATION
  Report Type: 
  Country: None (occurrence: None)
  Receive Date: 20100803
  Receipt Date: 20080601
  Transmission Date: 20110219
  Serious: No
  Sender: FDA-Public Use
  Company Number: US-PFIZER INC-2008046683

PATIENT
  Sex: Female
  Weight: 67.1 kg

DRUGS (2)
  1. LYRICA [Suspect]
     Indication: DIABETIC NEUROPATHY
     Route: 048
     Dates: start: 20080501
  2. LYRICA [Suspect]
     Indication: FIBROMYALGIA

REACTIONS (3)
  - ANXIETY [None]
  - INSOMNIA [None]
  - NERVOUSNESS [None]
